FAERS Safety Report 23137742 (Version 1)
Quarter: 2023Q4

REPORT INFORMATION
  Report Type: Spontaneous
  Country: ES (occurrence: ES)
  Receive Date: 20231102
  Receipt Date: 20231102
  Transmission Date: 20240110
  Serious: Yes (Other)
  Sender: FDA-Public Use
  Company Number: ES-JNJFOC-20231025759

PATIENT
  Sex: Male

DRUGS (2)
  1. ACETAMINOPHEN [Suspect]
     Active Substance: ACETAMINOPHEN
     Indication: Product used for unknown indication
     Dosage: UNK
     Route: 065
     Dates: start: 20231009
  2. ACETAMINOPHEN\ASCORBIC ACID\CAFFEINE CITRATE\CHLORPHENIRAMINE MALEATE\ [Suspect]
     Active Substance: ACETAMINOPHEN\ASCORBIC ACID\CAFFEINE CITRATE\CHLORPHENIRAMINE MALEATE\CODEINE PHOSPHATE\SALICYLAMIDE
     Indication: Product used for unknown indication
     Dosage: UNK
     Route: 065
     Dates: start: 20231009

REACTIONS (1)
  - Pyrexia [Unknown]

NARRATIVE: CASE EVENT DATE: 20231009
